FAERS Safety Report 6392020 (Version 4)
Quarter: 2017Q1

REPORT INFORMATION
  Report Type: Report from Study
  Country: BR (occurrence: BR)
  Receive Date: 20070827
  Receipt Date: 20170327
  Transmission Date: 20170429
  Serious: Yes (Life-Threatening, Other)
  Sender: FDA-Public Use
  Company Number: BR-PFIZER INC-2007069233

PATIENT
  Age: 12 Year
  Sex: Female

DRUGS (1)
  1. SOMATROPIN [Suspect]
     Active Substance: SOMATROPIN
     Indication: GROWTH RETARDATION
     Dosage: 2 MG, 1X/DAY
     Route: 058
     Dates: start: 20050609, end: 200708

REACTIONS (1)
  - Malignant melanoma stage I [Not Recovered/Not Resolved]

NARRATIVE: CASE EVENT DATE: 200708
